FAERS Safety Report 12393546 (Version 1)
Quarter: 2016Q2

REPORT INFORMATION
  Report Type: Spontaneous
  Country: US (occurrence: None)
  Receive Date: 20160520
  Receipt Date: 20160520
  Transmission Date: 20160815
  Serious: Yes (Hospitalization, Disabling)
  Sender: FDA-Public Use
  Company Number: None

PATIENT
  Age: 60 Year
  Sex: Male
  Weight: 94.8 kg

DRUGS (9)
  1. FISH OIL [Concomitant]
     Active Substance: FISH OIL
  2. CALCIUM CITRATE [Concomitant]
     Active Substance: CALCIUM CITRATE
  3. PROBOTICS [Concomitant]
  4. MAGNESIUM [Concomitant]
     Active Substance: MAGNESIUM
  5. METOPROLOL TART [Concomitant]
     Active Substance: METOPROLOL TARTRATE
  6. GLUCOSAMINE/CHONDROTIN [Concomitant]
  7. LEVOFLOXACIN, 750 MG [Suspect]
     Active Substance: LEVOFLOXACIN
     Indication: SINUSITIS
     Route: 048
     Dates: start: 20160406, end: 20160502
  8. MILK WEED [Concomitant]
  9. VALSARTAN. [Concomitant]
     Active Substance: VALSARTAN

REACTIONS (12)
  - Musculoskeletal pain [None]
  - Arthralgia [None]
  - Impaired work ability [None]
  - Feeling abnormal [None]
  - Headache [None]
  - Fatigue [None]
  - Toxicity to various agents [None]
  - Pain in extremity [None]
  - Chest pain [None]
  - Hypertension [None]
  - Back pain [None]
  - Somnolence [None]

NARRATIVE: CASE EVENT DATE: 20160406
